FAERS Safety Report 18418664 (Version 4)
Quarter: 2021Q1

REPORT INFORMATION
  Report Type: Spontaneous
  Country: GB (occurrence: GB)
  Receive Date: 20201023
  Receipt Date: 20210318
  Transmission Date: 20210419
  Serious: Yes (Other)
  Sender: FDA-Public Use
  Company Number: GB-TEVA-2020-GB-1841415

PATIENT
  Sex: Male

DRUGS (28)
  1. QUETIAPINE. [Suspect]
     Active Substance: QUETIAPINE
     Dosage: MEDICINE FROM INDIA
     Route: 065
  2. MINOCYCLINE [Suspect]
     Active Substance: MINOCYCLINE HYDROCHLORIDE
     Dosage: MEDICINE FROM INDIA
     Route: 065
  3. DESMODIUM [HERBALS] [Suspect]
     Active Substance: HERBALS
     Dosage: BURBUR TINCTURE ? SUPPLEMENT
     Route: 065
  4. GAMMA?AMINOBUTYRIC ACID [Suspect]
     Active Substance: .GAMMA.-AMINOBUTYRIC ACID
     Dosage: LIPOSOMAL GABA WITH L THEANINE ? SUPPLEMENT
     Route: 065
  5. RIFAMPICIN [Suspect]
     Active Substance: RIFAMPIN
     Dosage: MEDICINE FROM INDIA
     Route: 065
  6. CANNABIDIOL [Suspect]
     Active Substance: CANNABIDIOL
     Dosage: CBD OIL ? SUPPLEMENT
     Route: 065
  7. SACCHAROMYCES BOULARDII [Suspect]
     Active Substance: SACCHAROMYCES CEREVISIAE
     Dosage: SUPPLEMENT
     Route: 065
  8. SEA SALT [Suspect]
     Active Substance: SEA SALT
     Dosage: CELTIC SEA SALT ? SUPPLEMENT
     Route: 065
  9. EPSOM SALT [Suspect]
     Active Substance: MAGNESIUM SULFATE
     Dosage: EBSOM BATH SALTS ? SUPPLEMENT
     Route: 065
  10. MAGNESIUM [Suspect]
     Active Substance: MAGNESIUM
     Dosage: SUPPLEMENT
     Route: 065
  11. ORNITHINE [Suspect]
     Active Substance: ORNITHINE
     Dosage: L?ORTHANTHINE ?SUPPLEMENT
     Route: 065
  12. MILK [Suspect]
     Active Substance: COW MILK
     Dosage: MILK KEFIR ? SUPPLEMENT
     Route: 065
  13. TEA [Suspect]
     Active Substance: TEA LEAF
     Dosage: MATCHA
     Route: 065
  14. ZINC. [Suspect]
     Active Substance: ZINC
     Dosage: SUPPLEMENT
     Route: 065
  15. PIMPINELLA ANISUM [Suspect]
     Active Substance: PIMPINELLA ANISUM WHOLE
     Dosage: BURBUR TINCTURE ? SUPPLEMENT
     Route: 065
  16. PEA PROTEIN [DIETARY SUPPLEMENT\HERBALS] [Suspect]
     Active Substance: DIETARY SUPPLEMENT\HERBALS
     Dosage: SUPPLEMENT
     Route: 065
  17. LAMOTRIGINE. [Suspect]
     Active Substance: LAMOTRIGINE
     Route: 065
  18. TRIMETHOPRIM. [Suspect]
     Active Substance: TRIMETHOPRIM
     Dosage: MEDICINE FROM INDIA
     Route: 065
  19. L?THEANINE [Suspect]
     Active Substance: DIETARY SUPPLEMENT
     Dosage: LIPOSOMAL GABA WITH L THEANINE ? SUPPLEMENT
     Route: 065
  20. FLAGYL [Suspect]
     Active Substance: METRONIDAZOLE\METRONIDAZOLE HYDROCHLORIDE
     Dosage: MEDICINE FROM INDIA
     Route: 065
  21. SULFAMETHOXAZOLE [Suspect]
     Active Substance: SULFAMETHOXAZOLE
     Dosage: MEDICINE FROM INDIA
     Route: 065
  22. SILYBUM MARIANUM [Suspect]
     Active Substance: DIETARY SUPPLEMENT\HERBALS\MILK THISTLE
     Dosage: SUPPLEMENT
     Route: 065
  23. GLUTATHIONE [Suspect]
     Active Substance: GLUTATHIONE
     Dosage: LIPOSOMAL GLUTATHIONE ? SUPPLEMENT
     Route: 065
  24. AMOXICILLIN. [Suspect]
     Active Substance: AMOXICILLIN
     Route: 065
  25. ASCORBIC ACID. [Suspect]
     Active Substance: ASCORBIC ACID
     Dosage: LIPOSOMAL VITAMIN C ? SUPPLEMENT
     Route: 065
  26. PREGABALIN. [Suspect]
     Active Substance: PREGABALIN
     Dosage: MEDICINE FROM UK
     Route: 065
  27. CURCUMIN [Suspect]
     Active Substance: CURCUMIN
     Dosage: LIPOSOMAL CURCUMIN ? SUPPLEMENT
     Route: 065
  28. L?ASPARTIC ACID [Suspect]
     Active Substance: ASPARTIC ACID
     Dosage: SUPPLEMENT
     Route: 065

REACTIONS (2)
  - Metal poisoning [Unknown]
  - Seizure [Unknown]

NARRATIVE: CASE EVENT DATE: 202006
